FAERS Safety Report 21847285 (Version 1)
Quarter: 2023Q1

REPORT INFORMATION
  Report Type: Report from Study
  Country: US (occurrence: US)
  Receive Date: 20230111
  Receipt Date: 20230111
  Transmission Date: 20230418
  Serious: No
  Sender: FDA-Public Use
  Company Number: US-ABBVIE-21K-163-4173153-00

PATIENT
  Sex: Male

DRUGS (8)
  1. HUMIRA [Suspect]
     Active Substance: ADALIMUMAB
     Indication: Colitis ulcerative
     Dosage: DAY 1 CITRATE FREE/FORM STRENGTH: 40 MILLIGRAM
     Route: 058
     Dates: start: 20211030, end: 20211030
  2. HUMIRA [Suspect]
     Active Substance: ADALIMUMAB
     Indication: Crohn^s disease
     Dosage: CITRATE FREE/FORM STRENGTH: 40 MILLIGRAM
     Route: 058
  3. HUMIRA [Suspect]
     Active Substance: ADALIMUMAB
     Dosage: TIME INTERVAL: 1 TOTAL: DAY 15 CITRATE FREE/FORM STRENGTH: 40 MILLIGRAM
     Route: 058
     Dates: start: 20211114, end: 20211114
  4. HUMIRA [Suspect]
     Active Substance: ADALIMUMAB
     Dosage: DAY 29 CITRATE FREE/FORM STRENGTH: 40 MILLIGRAM
     Route: 058
     Dates: start: 20211127, end: 20211213
  5. HUMIRA [Suspect]
     Active Substance: ADALIMUMAB
     Dosage: CITRATE FREE/FORM STRENGTH: 40 MILLIGRAM?START DATE: DEC 2021
     Route: 058
  6. PFIZER-BIONTECH COVID-19 VACCINE [Suspect]
     Active Substance: TOZINAMERAN
     Indication: COVID-19 immunisation
     Dosage: FIRST DOSE
     Route: 030
     Dates: start: 202106, end: 202106
  7. PFIZER-BIONTECH COVID-19 VACCINE [Suspect]
     Active Substance: TOZINAMERAN
     Indication: COVID-19 immunisation
     Dosage: SECOND DOSE
     Route: 030
     Dates: start: 2021, end: 2021
  8. PFIZER-BIONTECH COVID-19 VACCINE [Suspect]
     Active Substance: TOZINAMERAN
     Indication: COVID-19 immunisation
     Dosage: BOOSTER DOSE
     Route: 030
     Dates: start: 202111, end: 202111

REACTIONS (20)
  - Colitis ulcerative [Unknown]
  - Fatigue [Recovered/Resolved]
  - Mucous stools [Recovered/Resolved]
  - Defaecation urgency [Not Recovered/Not Resolved]
  - Sinusitis [Unknown]
  - Frequent bowel movements [Unknown]
  - Asthenia [Unknown]
  - Abdominal distension [Unknown]
  - Flatulence [Unknown]
  - Stress [Unknown]
  - Arthralgia [Not Recovered/Not Resolved]
  - Anxiety [Unknown]
  - Headache [Recovered/Resolved]
  - Abdominal pain [Recovered/Resolved]
  - Blood cholesterol increased [Unknown]
  - Decreased appetite [Unknown]
  - Insomnia [Unknown]
  - Hyperhidrosis [Unknown]
  - Depressed mood [Unknown]
  - Pharyngitis [Unknown]

NARRATIVE: CASE EVENT DATE: 20220101
